FAERS Safety Report 9316510 (Version 2)
Quarter: 2013Q3

REPORT INFORMATION
  Report Type: Report from Study
  Country: CA (occurrence: CA)
  Receive Date: 20130530
  Receipt Date: 20130918
  Transmission Date: 20140515
  Serious: Yes (Life-Threatening)
  Sender: FDA-Public Use
  Company Number: CA-JNJFOC-20130516733

PATIENT
  Age: 63 Year
  Sex: Female
  Weight: 65 kg

DRUGS (13)
  1. REMICADE [Suspect]
     Indication: CROHN^S DISEASE
     Dosage: HAD RECEIVEDFIVE YEARS AGO
     Route: 042
  2. REMICADE [Suspect]
     Indication: CROHN^S DISEASE
     Dosage: INDUCTION THEN ONCE 8WEEKS
     Route: 042
     Dates: start: 20130522, end: 20130522
  3. REMICADE [Suspect]
     Indication: CROHN^S DISEASE
     Dosage: INDUCTION THEN ONCE 8WEEKS
     Route: 042
     Dates: start: 20130511
  4. TYLENOL [Concomitant]
     Indication: PREMEDICATION
     Dosage: 12:55
     Route: 048
     Dates: start: 20130522
  5. TYLENOL [Concomitant]
     Indication: PREMEDICATION
     Dosage: 12:55
     Route: 048
     Dates: start: 20130424
  6. TYLENOL [Concomitant]
     Indication: PREMEDICATION
     Dosage: 12:55
     Route: 048
     Dates: start: 20130411
  7. SOLU CORTEF [Concomitant]
     Indication: PREMEDICATION
     Dosage: 13:00
     Route: 042
     Dates: start: 20130522
  8. SOLU CORTEF [Concomitant]
     Indication: PREMEDICATION
     Dosage: 13:00
     Route: 042
     Dates: start: 20130411
  9. SOLU CORTEF [Concomitant]
     Indication: PREMEDICATION
     Dosage: 13:00
     Route: 042
     Dates: start: 20130424
  10. PREDNISONE [Concomitant]
     Route: 048
  11. BENADRYL [Concomitant]
     Indication: PREMEDICATION
     Route: 042
     Dates: start: 20130411
  12. BENADRYL [Concomitant]
     Indication: PREMEDICATION
     Route: 042
     Dates: start: 20130424
  13. BENADRYL [Concomitant]
     Indication: PREMEDICATION
     Route: 042
     Dates: start: 20130522

REACTIONS (6)
  - Dyspnoea [Recovered/Resolved]
  - Flushing [Recovered/Resolved]
  - Infusion related reaction [Recovered/Resolved]
  - Muscle spasms [Recovered/Resolved]
  - Back pain [Recovered/Resolved]
  - Pruritus [Unknown]
